FAERS Safety Report 12467460 (Version 3)
Quarter: 2016Q3

REPORT INFORMATION
  Report Type: Spontaneous
  Country: US (occurrence: US)
  Receive Date: 20160615
  Receipt Date: 20160714
  Transmission Date: 20161109
  Serious: Yes (Hospitalization)
  Sender: FDA-Public Use
  Company Number: US-JNJFOC-20160605824

PATIENT
  Age: 73 Year
  Sex: Female
  Weight: 52.62 kg

DRUGS (5)
  1. LACTOBACILLUS ACIDOPHILUS [Concomitant]
     Active Substance: LACTOBACILLUS ACIDOPHILUS
     Indication: PRODUCT USED FOR UNKNOWN INDICATION
     Route: 065
  2. ESTER-C PLUS [Concomitant]
     Indication: PRODUCT USED FOR UNKNOWN INDICATION
     Route: 065
  3. TUCKS HEMORRHOIDAL [Suspect]
     Active Substance: MINERAL OIL\PRAMOXINE HYDROCHLORIDE\ZINC OXIDE
     Indication: HAEMORRHOIDS
     Dosage: DOSAGE: USED UPTO 5 TIMES A DAY
     Route: 061
     Dates: start: 201511
  4. TUCKS HEMORRHOIDAL [Suspect]
     Active Substance: MINERAL OIL\PRAMOXINE HYDROCHLORIDE\ZINC OXIDE
     Indication: HAEMORRHOIDS
     Dosage: PEA SIZE PUT SMALL AMOUNT ON COTTON AND PUT IT ON HEMORRHOID AFTER USING RESTROOM
     Route: 061
     Dates: start: 20151102, end: 20151111
  5. ONE-A-DAY [Concomitant]
     Indication: PRODUCT USED FOR UNKNOWN INDICATION
     Route: 065

REACTIONS (4)
  - Expired product administered [Not Recovered/Not Resolved]
  - Vulvitis [Not Recovered/Not Resolved]
  - Genital pain [Not Recovered/Not Resolved]
  - Rectal cancer [Not Recovered/Not Resolved]

NARRATIVE: CASE EVENT DATE: 201511
